FAERS Safety Report 9005563 (Version 1)
Quarter: 2013Q1

REPORT INFORMATION
  Report Type: Spontaneous
  Country: US (occurrence: US)
  Receive Date: 20130109
  Receipt Date: 20130109
  Transmission Date: 20140127
  Serious: Yes (Other)
  Sender: FDA-Public Use
  Company Number: US-PFIZER INC-2012332745

PATIENT
  Sex: Female
  Weight: 81.63 kg

DRUGS (5)
  1. LIPITOR [Suspect]
     Indication: BLOOD CHOLESTEROL INCREASED
     Dosage: 20 MG, DAILY
  2. SYNTHROID [Concomitant]
     Indication: THYROID DISORDER
     Dosage: 20 MG, DAILY
  3. PROZAC [Concomitant]
     Dosage: 20 MG, DAILY
  4. XANAX [Concomitant]
     Dosage: 6 MG, DAILY
  5. SEROQUEL [Concomitant]
     Dosage: 200 MG, DAILY

REACTIONS (1)
  - Diabetes mellitus [Not Recovered/Not Resolved]
